FAERS Safety Report 4907295-6 (Version None)
Quarter: 2006Q1

REPORT INFORMATION
  Report Type: 
  Country: None (occurrence: None)
  Receive Date: 20060208
  Receipt Date: 20060208
  Transmission Date: 20060701
  Serious: Yes (Life-Threatening)
  Sender: FDA-Public Use
  Company Number: None

PATIENT
  Age: 79 Year
  Sex: Male
  Weight: 65.5 kg

DRUGS (11)
  1. PRAZOSIN 2 MG CAP [Suspect]
     Indication: BENIGN PROSTATIC HYPERPLASIA
     Dosage: 2 MG 1 CAP BID
     Dates: start: 20051101, end: 20051211
  2. ALBUTEROL [Concomitant]
  3. CALCIUM GLUCONATE [Concomitant]
  4. SIMETHICONE [Concomitant]
  5. ALBUTEROL/IPRATROPIUM INH [Concomitant]
  6. CYANOCOBALAMIN [Concomitant]
  7. OMEPRAZOLE [Concomitant]
  8. ASPIRIN [Concomitant]
  9. GUAIFENISEN [Concomitant]
  10. PROPRANOLOL [Concomitant]
  11. HYDROCORTISONE [Concomitant]

REACTIONS (4)
  - GASTROINTESTINAL PAIN [None]
  - MUSCULOSKELETAL CHEST PAIN [None]
  - ORTHOSTATIC HYPOTENSION [None]
  - SYNCOPE [None]
